FAERS Safety Report 9107814 (Version 1)
Quarter: 2013Q1

REPORT INFORMATION
  Report Type: Spontaneous
  Country: US (occurrence: US)
  Receive Date: 20130221
  Receipt Date: 20130221
  Transmission Date: 20140127
  Serious: No
  Sender: FDA-Public Use
  Company Number: US-PFIZER INC-2013064719

PATIENT
  Age: 59 Year
  Sex: Female
  Weight: 70.3 kg

DRUGS (6)
  1. EFFEXOR XR [Suspect]
     Indication: DEPRESSION
     Dosage: 37.5 MG, 1X/DAY
     Route: 048
  2. EFFEXOR XR [Suspect]
     Dosage: 75 MG, 1X/DAY
     Route: 048
     Dates: end: 201210
  3. EFFEXOR XR [Suspect]
     Dosage: 150 MG, 1X/DAY
     Route: 048
     Dates: start: 201210
  4. EFFEXOR XR [Suspect]
     Dosage: UNK
     Route: 048
  5. LAMICTAL [Concomitant]
     Dosage: 200 MG, 1X/DAY
  6. CLONAZEPAM [Concomitant]
     Dosage: 0.5 MG, 3X/DAY

REACTIONS (1)
  - Weight increased [Unknown]
